FAERS Safety Report 9249193 (Version 1)
Quarter: 2013Q1

REPORT INFORMATION
  Report Type: Spontaneous
  Country: US (occurrence: None)
  Receive Date: 20130305
  Receipt Date: 20130305
  Transmission Date: 20140127
  Serious: Yes (Hospitalization, Other)
  Sender: FDA-Public Use
  Company Number: 163-21880-12060568

PATIENT
  Age: 77 Year
  Sex: Female
  Weight: 63.5 kg

DRUGS (9)
  1. REVLIMID [Suspect]
     Indication: PLASMA CELL MYELOMA
     Dosage: 25 MG, X 21 DAYS, PO
     Dates: start: 201205
  2. CLONAZEPAM (CLONAZEPAM) [Concomitant]
  3. CLONIDINE (CLONIDINE) [Concomitant]
  4. FEXOFENADINE [Concomitant]
  5. LISINOPRIL (LISINOPRIL) [Concomitant]
  6. TRAMADOL (TRAMADOL) [Concomitant]
  7. LIPITOR (ATORVASTATIN) [Concomitant]
  8. FLEXERIL (CYCLOBENZAPRINE HYDROCHLORIDE) [Concomitant]
  9. DECADRON (DEXAMETHASONE) [Concomitant]

REACTIONS (2)
  - Hip fracture [None]
  - Fall [None]
